FAERS Safety Report 7581593-2 (Version None)
Quarter: 2011Q2

REPORT INFORMATION
  Report Type: 
  Country: None (occurrence: None)
  Receive Date: 20110629
  Receipt Date: 20110620
  Transmission Date: 20111010
  Serious: Yes (Other)
  Sender: FDA-Public Use
  Company Number: US-ELI_LILLY_AND_COMPANY-US200910005558

PATIENT
  Sex: Male
  Weight: 113.38 kg

DRUGS (12)
  1. CATAPRES [Concomitant]
     Dosage: UNK
     Route: 062
     Dates: start: 20070805, end: 20080204
  2. CATAPRES [Concomitant]
     Dosage: UNK
     Dates: start: 20080505, end: 20080804
  3. TOPROL-XL [Concomitant]
     Indication: BLOOD PRESSURE
  4. ALDACTONE [Concomitant]
     Dosage: 100 MG, UNK
  5. PRIMIDONE [Concomitant]
     Dosage: 50 MG, UNK
     Dates: start: 20070801, end: 20080731
  6. ENALAPRIL MALEATE [Concomitant]
     Dosage: UNK
     Dates: start: 20070915, end: 20071218
  7. CRESTOR [Concomitant]
     Dosage: UNK
     Dates: start: 20070921, end: 20071218
  8. BYETTA [Suspect]
     Dosage: UNK, UNKNOWN
     Route: 065
     Dates: start: 20070801, end: 20080731
  9. METOPROLOL TARTRATE [Concomitant]
     Dosage: UNK
     Dates: start: 20070819, end: 20080822
  10. MINOXIDIL [Concomitant]
     Dosage: 2.5 MG, UNK
  11. TRIAMTERENE [Concomitant]
     Indication: DIURETIC THERAPY
     Dosage: UNK
     Dates: start: 20070912, end: 20071226
  12. METFORMIN HCL [Concomitant]
     Indication: DIABETES MELLITUS
     Dosage: 1000 MG, UNK
     Dates: start: 20071102, end: 20080907

REACTIONS (2)
  - DIARRHOEA [None]
  - PANCREATITIS ACUTE [None]
